FAERS Safety Report 9103634 (Version 1)
Quarter: 2013Q1

REPORT INFORMATION
  Report Type: Spontaneous
  Country: JP (occurrence: JP)
  Receive Date: 20130219
  Receipt Date: 20130219
  Transmission Date: 20140127
  Serious: Yes (Other)
  Sender: FDA-Public Use
  Company Number: JP-PFIZER INC-2013030773

PATIENT
  Age: 86 Year
  Sex: Male

DRUGS (1)
  1. JZOLOFT [Suspect]
     Dosage: 25 MG, 1X/DAY (AFTER DINNER)
     Route: 048

REACTIONS (8)
  - Delirium [Unknown]
  - Dementia [Unknown]
  - Hallucination [Unknown]
  - Amimia [Unknown]
  - Fall [Unknown]
  - Drug intolerance [Unknown]
  - Dizziness [Unknown]
  - Asthenia [Unknown]
